FAERS Safety Report 8658357 (Version 4)
Quarter: 2018Q1

REPORT INFORMATION
  Report Type: Report from Study
  Country: BR (occurrence: BR)
  Receive Date: 20120710
  Receipt Date: 20180221
  Transmission Date: 20180509
  Serious: Yes (Hospitalization, Other)
  Sender: FDA-Public Use
  Company Number: BR-ROCHE-1084541

PATIENT
  Sex: Female
  Weight: 85 kg

DRUGS (11)
  1. RITUXIMAB. [Suspect]
     Active Substance: RITUXIMAB
     Indication: RHEUMATOID ARTHRITIS
     Route: 042
     Dates: start: 20110429
  2. RITUXIMAB. [Suspect]
     Active Substance: RITUXIMAB
     Route: 042
     Dates: start: 20110429, end: 20120802
  3. EUTHYROX [Concomitant]
     Active Substance: LEVOTHYROXINE SODIUM
  4. RITUXIMAB. [Suspect]
     Active Substance: RITUXIMAB
     Route: 042
     Dates: start: 20110603
  5. ARAVA [Concomitant]
     Active Substance: LEFLUNOMIDE
  6. SIMVASTATIN. [Concomitant]
     Active Substance: SIMVASTATIN
  7. UNSPECIFIED DRUG [Concomitant]
     Active Substance: UNSPECIFIED INGREDIENT
     Indication: PAIN
  8. METHOTREXATE. [Concomitant]
     Active Substance: METHOTREXATE
  9. RITUXIMAB. [Suspect]
     Active Substance: RITUXIMAB
     Route: 042
     Dates: start: 20170731
  10. PURAN [Concomitant]
     Active Substance: LEVOTHYROXINE SODIUM
  11. LOSARTAN. [Concomitant]
     Active Substance: LOSARTAN

REACTIONS (7)
  - Immunodeficiency [Recovering/Resolving]
  - Weight increased [Not Recovered/Not Resolved]
  - Influenza [Recovering/Resolving]
  - Pain in extremity [Unknown]
  - Inflammation [Unknown]
  - Hypertension [Recovered/Resolved]
  - Anaphylactic shock [Not Recovered/Not Resolved]
